FAERS Safety Report 5511603-5 (Version None)
Quarter: 2007Q4

REPORT INFORMATION
  Report Type: 
  Country: None (occurrence: None)
  Receive Date: 20071109
  Receipt Date: 20071102
  Transmission Date: 20080405
  Serious: Yes (Other)
  Sender: FDA-Public Use
  Company Number: JP-ROCHE-529303

PATIENT
  Age: 12 Day
  Sex: Male

DRUGS (2)
  1. DENOSINE IV [Suspect]
     Indication: CONGENITAL CYTOMEGALOVIRUS INFECTION
     Route: 041
     Dates: start: 20061202, end: 20061205
  2. DENOSINE IV [Suspect]
     Route: 041
     Dates: start: 20061206, end: 20061212

REACTIONS (1)
  - BONE MARROW FAILURE [None]
